FAERS Safety Report 25751089 (Version 1)
Quarter: 2025Q3

REPORT INFORMATION
  Report Type: Spontaneous
  Country: US (occurrence: None)
  Receive Date: 20250831
  Receipt Date: 20250831
  Transmission Date: 20251021
  Serious: Yes (Other)
  Sender: FDA-CTU
  Company Number: None

PATIENT
  Age: 72 Year
  Sex: Female
  Weight: 76.5 kg

DRUGS (13)
  1. CETIRIZINE [Suspect]
     Active Substance: CETIRIZINE HYDROCHLORIDE
     Indication: Allergic sinusitis
     Dosage: 1 TABLET DAILY ORAL
     Route: 048
     Dates: start: 20250623, end: 20250625
  2. CETIRIZINE [Suspect]
     Active Substance: CETIRIZINE HYDROCHLORIDE
     Indication: Headache
  3. METOPROLOL [Concomitant]
     Active Substance: METOPROLOL
  4. ROSUVASTATIN [Concomitant]
     Active Substance: ROSUVASTATIN
  5. LOW DOSE ESTRADIOL [Concomitant]
  6. MEDROXYPROGESTERONE FOR TINNITUS [Concomitant]
  7. TYLENOL [Concomitant]
     Active Substance: ACETAMINOPHEN
  8. IBUPROFEN [Concomitant]
     Active Substance: IBUPROFEN
  9. VITAMIN C [Concomitant]
     Active Substance: ASCORBIC ACID
  10. VITAMIN D3 [Concomitant]
     Active Substance: CHOLECALCIFEROL
  11. CALCIUM [Concomitant]
     Active Substance: CALCIUM
  12. CLARITIN BUT RAN OUT [Concomitant]
  13. ZYRTEC (GENERIC) [Concomitant]

REACTIONS (7)
  - Ocular hyperaemia [None]
  - Muscle spasms [None]
  - Hyperhidrosis [None]
  - Bedridden [None]
  - Ocular hyperaemia [None]
  - Allergic sinusitis [None]
  - Condition aggravated [None]

NARRATIVE: CASE EVENT DATE: 20250623
